FAERS Safety Report 10330835 (Version 1)
Quarter: 2014Q3

REPORT INFORMATION
  Report Type: Spontaneous
  Country: US (occurrence: None)
  Receive Date: 20140721
  Receipt Date: 20140721
  Transmission Date: 20150326
  Serious: Yes (Hospitalization)
  Sender: FDA-Public Use
  Company Number: None

PATIENT
  Age: 90 Year
  Sex: Female
  Weight: 37 kg

DRUGS (4)
  1. FRESENIUS MACHINE  2008K [Concomitant]
  2. SODIUM CITRATE [Suspect]
     Active Substance: SODIUM CITRATE
     Indication: DIALYSIS
     Dosage: PACK CATHETER LUMEN 3X WEEKLY
     Dates: start: 20131127
  3. EPOGEN [Concomitant]
     Active Substance: ERYTHROPOIETIN
  4. GRANUFLO [Concomitant]
     Active Substance: ACETIC ACID\SODIUM ACETATE

REACTIONS (3)
  - Product quality issue [None]
  - White blood cell count increased [None]
  - Pyrexia [None]

NARRATIVE: CASE EVENT DATE: 20140507
